FAERS Safety Report 23749531 (Version 1)
Quarter: 2024Q2

REPORT INFORMATION
  Report Type: Spontaneous
  Country: US (occurrence: US)
  Receive Date: 20240416
  Receipt Date: 20240416
  Transmission Date: 20240716
  Serious: No
  Sender: FDA-Public Use
  Company Number: US-TEVA-VS-3146954

PATIENT
  Age: 59 Year
  Sex: Female
  Weight: 43.09 kg

DRUGS (4)
  1. AJOVY [Suspect]
     Active Substance: FREMANEZUMAB-VFRM
     Indication: Migraine
     Route: 065
     Dates: start: 20240115
  2. ESTRADIOL [Concomitant]
     Active Substance: ESTRADIOL
  3. BUTALBITAL [Concomitant]
     Active Substance: BUTALBITAL
     Indication: Headache
  4. TOPIRAMATE [Concomitant]
     Active Substance: TOPIRAMATE

REACTIONS (1)
  - Headache [Not Recovered/Not Resolved]

NARRATIVE: CASE EVENT DATE: 20240115
